FAERS Safety Report 20077467 (Version 3)
Quarter: 2021Q4

REPORT INFORMATION
  Report Type: Report from Study
  Country: SE (occurrence: SE)
  Receive Date: 20211116
  Receipt Date: 20211209
  Transmission Date: 20220304
  Serious: Yes (Death, Life-Threatening, Hospitalization, Other)
  Sender: FDA-Public Use
  Company Number: SE-JNJFOC-20211129649

PATIENT
  Age: 79 Year
  Sex: Male
  Weight: 69.8 kg

DRUGS (4)
  1. IBRUTINIB [Suspect]
     Active Substance: IBRUTINIB
     Indication: Diffuse large B-cell lymphoma
     Route: 048
     Dates: start: 20210913, end: 20211031
  2. JNJ-67856633 [Concomitant]
     Indication: Diffuse large B-cell lymphoma
     Dosage: FOR FIRST 7 DAYS
     Route: 048
     Dates: start: 20210913, end: 20211031
  3. OMEPRAZOLE [Concomitant]
     Active Substance: OMEPRAZOLE
     Indication: Prophylaxis
     Route: 065
     Dates: start: 20201215
  4. LOPERAMIDE [Concomitant]
     Active Substance: LOPERAMIDE
     Indication: Prophylaxis
     Route: 065
     Dates: start: 20210225

REACTIONS (1)
  - Intra-abdominal haemorrhage [Fatal]

NARRATIVE: CASE EVENT DATE: 20211029
